FAERS Safety Report 4911040-8 (Version None)
Quarter: 2006Q1

REPORT INFORMATION
  Report Type: 
  Country: None (occurrence: None)
  Receive Date: 20060214
  Receipt Date: 20050706
  Transmission Date: 20060701
  Serious: Yes (Death, Disabling)
  Sender: FDA-Public Use
  Company Number: US-MERCK-0507USA00995

PATIENT
  Age: 58 Year
  Sex: Male
  Weight: 111 kg

DRUGS (10)
  1. ATENOLOL [Concomitant]
     Route: 065
  2. HYDROCHLOROTHIAZIDE [Concomitant]
     Route: 065
  3. LOTENSIN [Concomitant]
     Route: 065
  4. PREVACID [Concomitant]
     Route: 065
  5. SAW PALMETTO STANDARDIZED EXTRACT [Concomitant]
     Route: 065
  6. VITAMINS (UNSPECIFIED) [Concomitant]
     Route: 065
  7. NIASPAN [Concomitant]
     Route: 065
  8. DIGITEK [Concomitant]
     Route: 065
  9. VIOXX [Suspect]
     Indication: OSTEOARTHRITIS
     Route: 048
     Dates: end: 20040901
  10. LIPITOR [Concomitant]
     Route: 065

REACTIONS (3)
  - ARTHROPATHY [None]
  - INFECTIVE TENOSYNOVITIS [None]
  - MYOCARDIAL INFARCTION [None]
